FAERS Safety Report 25095114 (Version 1)
Quarter: 2025Q1

REPORT INFORMATION
  Report Type: Spontaneous
  Country: DE (occurrence: DE)
  Receive Date: 20250319
  Receipt Date: 20250319
  Transmission Date: 20250409
  Serious: Yes (Other)
  Sender: BOEHRINGER INGELHEIM
  Company Number: DE-Komodo Health-a23aa000006S26gAAC

PATIENT
  Age: 75 Year
  Sex: Female

DRUGS (2)
  1. JARDIANCE [Suspect]
     Active Substance: EMPAGLIFLOZIN
     Indication: Diabetes mellitus
  2. Verzenios 50 mg [Concomitant]
     Indication: Product used for unknown indication
     Dates: start: 202501

REACTIONS (3)
  - Breast cancer [Not Recovered/Not Resolved]
  - Lymphadenopathy [Unknown]
  - Nausea [Not Recovered/Not Resolved]

NARRATIVE: CASE EVENT DATE: 20230101
